FAERS Safety Report 16880845 (Version 6)
Quarter: 2019Q4

REPORT INFORMATION
  Report Type: Spontaneous
  Country: US (occurrence: US)
  Receive Date: 20191003
  Receipt Date: 20191205
  Transmission Date: 20200122
  Serious: No
  Sender: FDA-Public Use
  Company Number: US-PFIZER INC-2019398481

PATIENT
  Age: 56 Year
  Sex: Female
  Weight: 51 kg

DRUGS (2)
  1. PREMARIN [Suspect]
     Active Substance: ESTROGENS, CONJUGATED
     Dosage: UNK, 2X/WEEK (1/3 APP FULL VAGINALLY TWICE A WEEK) AT BEDTIME ONCE D TWICE WEEKLY
     Route: 067
  2. PREMARIN [Suspect]
     Active Substance: ESTROGENS, CONJUGATED
     Dosage: 0.625 MG, UNK

REACTIONS (5)
  - Vulvovaginal burning sensation [Unknown]
  - Drug ineffective [Unknown]
  - Vulvovaginal pruritus [Unknown]
  - Product use issue [Unknown]
  - Off label use [Unknown]
